FAERS Safety Report 10360943 (Version 2)
Quarter: 2014Q3

REPORT INFORMATION
  Report Type: Spontaneous
  Country: US (occurrence: US)
  Receive Date: 20140804
  Receipt Date: 20140807
  Transmission Date: 20150326
  Serious: Yes (Hospitalization, Other)
  Sender: FDA-Public Use
  Company Number: US-PFIZER INC-2014213502

PATIENT
  Age: 63 Year
  Sex: Male

DRUGS (5)
  1. NAMENDA [Interacting]
     Active Substance: MEMANTINE HYDROCHLORIDE
     Dosage: UNK
  2. AMITRIPTYLINE [Interacting]
     Active Substance: AMITRIPTYLINE
     Dosage: UNK
  3. TECFIDERA [Suspect]
     Active Substance: DIMETHYL FUMARATE
     Indication: MULTIPLE SCLEROSIS
     Dosage: 240 MG, 2X/DAY (BID)
     Route: 048
     Dates: start: 2013
  4. LYRICA [Suspect]
     Active Substance: PREGABALIN
     Dosage: UNK
  5. REBIF [Concomitant]
     Active Substance: INTERFERON BETA-1A

REACTIONS (11)
  - Urinary incontinence [Not Recovered/Not Resolved]
  - Haemorrhage intracranial [Unknown]
  - Balance disorder [Unknown]
  - Gait disturbance [Not Recovered/Not Resolved]
  - Fall [Not Recovered/Not Resolved]
  - Drug interaction [Unknown]
  - Loss of control of legs [Unknown]
  - Bladder disorder [Not Recovered/Not Resolved]
  - Joint instability [Unknown]
  - Muscle spasms [Recovered/Resolved]
  - Generalised tonic-clonic seizure [Recovered/Resolved]

NARRATIVE: CASE EVENT DATE: 2014
